FAERS Safety Report 7799051-9 (Version None)
Quarter: 2011Q4

REPORT INFORMATION
  Report Type: 
  Country: None (occurrence: None)
  Receive Date: 20111006
  Receipt Date: 20110923
  Transmission Date: 20120403
  Serious: No
  Sender: FDA-Public Use
  Company Number: US-BAYER-2011-090328

PATIENT
  Age: 13 Year
  Sex: Male

DRUGS (2)
  1. KOGENATE FS [Suspect]
     Indication: PROPHYLAXIS
     Dosage: 2 VIALS
  2. KOGENATE FS [Suspect]
     Indication: HAEMOPHILIA
     Dosage: 1 VIAL

REACTIONS (2)
  - DYSPNOEA [None]
  - FLATULENCE [None]
